FAERS Safety Report 14586712 (Version 3)
Quarter: 2018Q2

REPORT INFORMATION
  Report Type: Spontaneous
  Country: ES (occurrence: ES)
  Receive Date: 20180301
  Receipt Date: 20180402
  Transmission Date: 20180711
  Serious: Yes (Other)
  Sender: FDA-Public Use
  Company Number: ES-TOLMAR, INC.-2018ES002209

PATIENT

DRUGS (11)
  1. PROPRANOLOL [Concomitant]
     Active Substance: PROPRANOLOL HYDROCHLORIDE
  2. OMEPRAZOLE. [Concomitant]
     Active Substance: OMEPRAZOLE
  3. ALLOPURINOL. [Concomitant]
     Active Substance: ALLOPURINOL
  4. XTANDI [Suspect]
     Active Substance: ENZALUTAMIDE
     Indication: HORMONE-REFRACTORY PROSTATE CANCER
     Dosage: 160 MG, DAILY
     Route: 048
     Dates: start: 20170809, end: 20180109
  5. SITAGLIPTIN [Concomitant]
     Active Substance: SITAGLIPTIN
  6. LOSARTAN. [Concomitant]
     Active Substance: LOSARTAN
  7. SIMVASTATIN. [Concomitant]
     Active Substance: SIMVASTATIN
  8. ELIGARD [Suspect]
     Active Substance: LEUPROLIDE ACETATE
     Indication: HORMONE-REFRACTORY PROSTATE CANCER
     Dosage: 45 MG, 1 VIAL (EVERY 6 MONTHS)
     Route: 058
     Dates: start: 20140325
  9. METFORMIN [Concomitant]
     Active Substance: METFORMIN HYDROCHLORIDE
  10. PARACETAMOL [Concomitant]
     Active Substance: ACETAMINOPHEN
  11. DECAPEPTYL (ACETATE) [Concomitant]
     Active Substance: TRIPTORELIN ACETATE
     Dosage: UNK
     Dates: start: 201407

REACTIONS (16)
  - Somnolence [Unknown]
  - Bradyphrenia [Unknown]
  - Faecaloma [Unknown]
  - Dizziness [Unknown]
  - Neurotoxicity [Unknown]
  - Asthenia [Recovering/Resolving]
  - Flatulence [Unknown]
  - Lacunar infarction [Unknown]
  - Dyskinesia [Unknown]
  - General physical health deterioration [Unknown]
  - Muscular weakness [Unknown]
  - Lymphadenopathy [Unknown]
  - Renal failure [Unknown]
  - Fall [Unknown]
  - Prostatic specific antigen increased [Recovered/Resolved]
  - Constipation [Unknown]

NARRATIVE: CASE EVENT DATE: 201708
